FAERS Safety Report 5310233-8 (Version None)
Quarter: 2007Q2

REPORT INFORMATION
  Report Type: 
  Country: None (occurrence: None)
  Receive Date: 20070427
  Receipt Date: 20070418
  Transmission Date: 20071010
  Serious: Yes (Death)
  Sender: FDA-Public Use
  Company Number: MX-ROCHE-494146

PATIENT
  Age: 41 Year
  Sex: Male
  Weight: 48.5 kg

DRUGS (4)
  1. FORTOVASE [Suspect]
     Route: 048
     Dates: start: 20061017, end: 20061029
  2. RITONAVIR [Concomitant]
     Route: 048
     Dates: start: 20061017, end: 20061029
  3. TENOFOVIR [Concomitant]
     Route: 048
     Dates: start: 20061017, end: 20061029
  4. EMTRICITABINE [Concomitant]
     Route: 048
     Dates: start: 20061017, end: 20061029

REACTIONS (3)
  - DIARRHOEA [None]
  - FATIGUE [None]
  - PYREXIA [None]
